FAERS Safety Report 5766847-4 (Version None)
Quarter: 2008Q2

REPORT INFORMATION
  Report Type: 
  Country: None (occurrence: None)
  Receive Date: 20080609
  Receipt Date: 20080529
  Transmission Date: 20081010
  Serious: Yes (Death)
  Sender: FDA-Public Use
  Company Number: GXBR2008US01266

PATIENT
  Age: 64 Year
  Sex: Male

DRUGS (1)
  1. GABAPENTIN [Suspect]
     Indication: COMPLEX REGIONAL PAIN SYNDROME
     Dosage: 400 MG, ORAL
     Route: 048

REACTIONS (5)
  - COMPLETED SUICIDE [None]
  - DRUG INEFFECTIVE [None]
  - FEAR OF DEATH [None]
  - INJURY [None]
  - SUICIDAL IDEATION [None]
